FAERS Safety Report 9620961 (Version 1)
Quarter: 2013Q4

REPORT INFORMATION
  Report Type: Spontaneous
  Country: US (occurrence: US)
  Receive Date: 20131015
  Receipt Date: 20131015
  Transmission Date: 20140711
  Serious: No
  Sender: FDA-Public Use
  Company Number: US-009507513-1310USA003870

PATIENT
  Age: 65 Year
  Sex: Female

DRUGS (3)
  1. SINGULAIR [Suspect]
     Indication: HYPERSENSITIVITY
     Dosage: 10 MG, QD
     Route: 048
     Dates: start: 20130924, end: 20131004
  2. LISINOPRIL [Concomitant]
  3. AMARYL [Concomitant]

REACTIONS (1)
  - Palpitations [Recovering/Resolving]
